FAERS Safety Report 10256518 (Version 1)
Quarter: 2014Q2

REPORT INFORMATION
  Report Type: Spontaneous
  Country: US (occurrence: US)
  Receive Date: 20140624
  Receipt Date: 20140624
  Transmission Date: 20141212
  Serious: No
  Sender: FDA-Public Use
  Company Number: US-ZOGENIX, INC.-2012ZX000247

PATIENT
  Sex: Female
  Weight: 78.09 kg

DRUGS (5)
  1. SUMAVEL DOSEPRO [Suspect]
     Indication: MIGRAINE
     Dates: start: 201205
  2. NORTRIPTYLINE [Concomitant]
     Indication: MIGRAINE PROPHYLAXIS
     Route: 048
  3. XANAX [Concomitant]
     Indication: ANXIETY
  4. AMBIEN [Concomitant]
     Indication: SLEEP DISORDER
  5. LEVOTHYROXINE SODIUM [Concomitant]
     Indication: THYROID DISORDER

REACTIONS (3)
  - Injection site pain [Recovered/Resolved]
  - Incorrect dose administered by device [Recovered/Resolved]
  - Injection site haemorrhage [Recovered/Resolved]
